FAERS Safety Report 6248127-6 (Version None)
Quarter: 2009Q2

REPORT INFORMATION
  Report Type: 
  Country: None (occurrence: None)
  Receive Date: 20090624
  Receipt Date: 20090624
  Transmission Date: 20091009
  Serious: Yes (Other)
  Sender: FDA-Public Use
  Company Number: None

PATIENT
  Sex: Female
  Weight: 23.1334 kg

DRUGS (10)
  1. LORATADINE [Suspect]
     Indication: ADVERSE REACTION
     Dosage: 10 MG TABLET DAILY PO
     Route: 048
     Dates: start: 20071001
  2. LORATADINE [Suspect]
     Indication: MULTIPLE ALLERGIES
     Dosage: 10 MG TABLET DAILY PO
     Route: 048
     Dates: start: 20071001
  3. LORATADINE [Suspect]
     Indication: ADVERSE REACTION
     Dosage: 10 MG TABLET DAILY PO
     Route: 048
     Dates: start: 20090604
  4. LORATADINE [Suspect]
     Indication: MULTIPLE ALLERGIES
     Dosage: 10 MG TABLET DAILY PO
     Route: 048
     Dates: start: 20090604
  5. LORATADINE [Suspect]
     Indication: ADVERSE REACTION
     Dosage: 10 MG TABLET DAILY PO
     Route: 048
     Dates: start: 20090605
  6. LORATADINE [Suspect]
     Indication: MULTIPLE ALLERGIES
     Dosage: 10 MG TABLET DAILY PO
     Route: 048
     Dates: start: 20090605
  7. LORATADINE [Suspect]
     Indication: ADVERSE REACTION
     Dosage: 10 MG TABLET DAILY PO
     Route: 048
     Dates: start: 20090606
  8. LORATADINE [Suspect]
     Indication: MULTIPLE ALLERGIES
     Dosage: 10 MG TABLET DAILY PO
     Route: 048
     Dates: start: 20090606
  9. LORATADINE [Suspect]
     Indication: ADVERSE REACTION
     Dosage: 10 MG TABLET DAILY PO
     Route: 048
     Dates: start: 20090607
  10. LORATADINE [Suspect]
     Indication: MULTIPLE ALLERGIES
     Dosage: 10 MG TABLET DAILY PO
     Route: 048
     Dates: start: 20090607

REACTIONS (1)
  - SLEEP TERROR [None]
